FAERS Safety Report 15686427 (Version 1)
Quarter: 2018Q4

REPORT INFORMATION
  Report Type: Spontaneous
  Country: US (occurrence: US)
  Receive Date: 20181204
  Receipt Date: 20181204
  Transmission Date: 20190205
  Serious: Yes (Hospitalization, Other)
  Sender: FDA-Public Use
  Company Number: US-PFIZER INC-2018495129

PATIENT
  Age: 69 Year
  Sex: Female
  Weight: 83 kg

DRUGS (1)
  1. SUTENT [Suspect]
     Active Substance: SUNITINIB MALATE
     Indication: RENAL CELL CARCINOMA STAGE III
     Dosage: 50 MG, 1X/DAY
     Route: 048
     Dates: start: 20181001, end: 20181025

REACTIONS (21)
  - Eye colour change [Recovering/Resolving]
  - Yellow skin [Recovering/Resolving]
  - Dehydration [Recovered/Resolved]
  - Nausea [Recovered/Resolved]
  - Red blood cell count decreased [Recovering/Resolving]
  - Cholecystitis [Unknown]
  - Swelling face [Recovered/Resolved]
  - Back pain [Recovered/Resolved]
  - Dyspnoea [Recovered/Resolved]
  - Ear infection [Recovered/Resolved]
  - Oral discomfort [Not Recovered/Not Resolved]
  - Fatigue [Recovering/Resolving]
  - Sinusitis [Recovered/Resolved]
  - Constipation [Recovered/Resolved]
  - Swollen tongue [Recovered/Resolved]
  - Cardiac murmur [Recovering/Resolving]
  - Hypohidrosis [Recovered/Resolved]
  - White blood cell count decreased [Recovering/Resolving]
  - Pancreatitis [Unknown]
  - Abdominal distension [Recovered/Resolved]
  - Headache [Recovered/Resolved]

NARRATIVE: CASE EVENT DATE: 201810
